FAERS Safety Report 7763577-4 (Version None)
Quarter: 2011Q3

REPORT INFORMATION
  Report Type: 
  Country: None (occurrence: None)
  Receive Date: 20110920
  Receipt Date: 20110918
  Transmission Date: 20111222
  Serious: Yes (Hospitalization, Other)
  Sender: FDA-Public Use
  Company Number: DE-BAYER-2011-086692

PATIENT
  Age: 12 Year
  Sex: Female
  Weight: 49 kg

DRUGS (1)
  1. GADAVIST [Suspect]
     Indication: DIAGNOSTIC PROCEDURE
     Dosage: 0.1 ML/KG, UNK
     Route: 042
     Dates: start: 20110915

REACTIONS (4)
  - PARAESTHESIA [None]
  - DIZZINESS [None]
  - FEELING COLD [None]
  - CHILLS [None]
